FAERS Safety Report 21986229 (Version 1)
Quarter: 2023Q1

REPORT INFORMATION
  Report Type: Spontaneous
  Country: ES (occurrence: ES)
  Receive Date: 20230213
  Receipt Date: 20230213
  Transmission Date: 20230417
  Serious: Yes (Hospitalization)
  Sender: FDA-Public Use
  Company Number: None

PATIENT
  Age: 89 Year
  Sex: Female

DRUGS (14)
  1. LYRICA [Suspect]
     Active Substance: PREGABALIN
     Indication: Pain
     Dosage: 75 MILLIGRAM,BID(75.0 MG BREAKFAST, DINNER)
     Route: 048
     Dates: start: 20221103
  2. MORPHINE [Suspect]
     Active Substance: MORPHINE
     Indication: Cervix carcinoma stage IV
     Dosage: 10 MILLIGRAM, Q4H(10.0 MG EVERY 4 HOURS)
     Route: 048
     Dates: start: 20221210
  3. FENTANYL [Suspect]
     Active Substance: FENTANYL
     Indication: Cervix carcinoma stage IV
     Dosage: UNK UNK, Q3D(1.0 PATCH EVERY 72 HOURS)
     Route: 065
     Dates: start: 20221211
  4. PREGABALIN [Suspect]
     Active Substance: PREGABALIN
     Indication: Cervix carcinoma stage IV
     Dosage: 50 MILLIGRAM,QD(50.0 MG DINNER)
     Route: 048
     Dates: start: 20221205, end: 20230103
  5. PREGABALIN [Suspect]
     Active Substance: PREGABALIN
     Dosage: 50 MILLIGRAM,QD(50.0 MG DINNER)
     Route: 048
     Dates: start: 20230109
  6. PARACETAMOL CINFA [Concomitant]
     Indication: Pain
     Dosage: 1 GRAM, QD(1.0 G BEFORE BREAKFAST)
     Route: 048
     Dates: start: 20221125
  7. Nolotil [Concomitant]
     Indication: Cervix carcinoma stage IV
     Dosage: 575 MILLIGRAM,TID(575MG BREAKFAST,LUNCH,DINNER)
     Route: 048
     Dates: start: 20221125
  8. TRANEXAMIC ACID [Concomitant]
     Active Substance: TRANEXAMIC ACID
     Indication: Product used for unknown indication
     Dosage: 1000 MILLIGRAM, Q8H(1000.0 MG EVERY 8 HOURS)
     Route: 048
     Dates: start: 20211122
  9. DEXAMETHASONE [Concomitant]
     Active Substance: DEXAMETHASONE
     Indication: Cervix carcinoma stage IV
     Dosage: 4 MILLIGRAM,QD(4.0 MG BREAKFAST)
     Route: 048
     Dates: start: 20221126
  10. Foliferron [Concomitant]
     Indication: Anaemia
     Dosage: TID(1.0 TABLET BEFORE BREAKFAST, LUNCH, DINNER)
     Route: 048
     Dates: start: 20211122
  11. FOSFOMICINA QUALIGEN [Concomitant]
     Indication: Vaginal infection
     Dosage: 3000 MILLIGRAM(3000.0 MG)
     Route: 048
     Dates: start: 20230110, end: 20230110
  12. MUPIROCINA ISDIN [Concomitant]
     Indication: Vaginal infection
     Dosage: UNK UNK, Q8H(1.0 APPLICATIONS EVERY 8 HOURS)
     Route: 061
     Dates: start: 20230109
  13. DEXKETOPROFEN TROMETAMOL [Concomitant]
     Active Substance: DEXKETOPROFEN TROMETAMOL
     Indication: Pain
     Dosage: 25MILLIGRAM,TID(25.0 MG BREAKFAST,LUNCH,DINNER)
     Route: 048
     Dates: start: 20221205, end: 20230103
  14. CHOLECALCIFEROL [Concomitant]
     Active Substance: CHOLECALCIFEROL
     Indication: Cervix carcinoma stage IV
     Dosage: 25000INTERNATIONAL UNIT, QW,25000.0 IU EVERY 7D
     Route: 048
     Dates: start: 20220301

REACTIONS (2)
  - Hip fracture [Recovering/Resolving]
  - Fall [Recovering/Resolving]

NARRATIVE: CASE EVENT DATE: 20230115
